FAERS Safety Report 22121062 (Version 11)
Quarter: 2024Q4

REPORT INFORMATION
  Report Type: Spontaneous
  Country: CA (occurrence: CA)
  Receive Date: 20230321
  Receipt Date: 20241010
  Transmission Date: 20250115
  Serious: Yes (Other)
  Sender: PFIZER
  Company Number: CA-PFIZER INC-PV202200086961

PATIENT
  Age: 58 Year
  Sex: Female
  Weight: 54.7 kg

DRUGS (4)
  1. IBRANCE [Suspect]
     Active Substance: PALBOCICLIB
     Indication: Breast cancer metastatic
     Dosage: 125 MG, DAILY
     Route: 048
     Dates: start: 20221103
  2. IBRANCE [Suspect]
     Active Substance: PALBOCICLIB
     Dosage: 75 MG, CYCLIC (DAILY FOR 21 DAYS WITH 1 WEEK BREAK)
     Route: 048
  3. IBRANCE [Suspect]
     Active Substance: PALBOCICLIB
     Dosage: 75 MG, CYCLIC (TAKE 1 TABLET ONCE DAILY FOR 21DAYS, STOP FOR 7 DAYS)
     Route: 048
  4. EXEMESTANE [Concomitant]
     Active Substance: EXEMESTANE
     Dosage: 25 MG, DAILY, 1TABLET,PRESCRIBED QTY 450TABS, TX QTY 90 TABS, QTY REM 450TABS
     Route: 048
     Dates: start: 20240129

REACTIONS (10)
  - Hysterectomy [Unknown]
  - Bradycardia [Unknown]
  - Hypothyroidism [Unknown]
  - Liver disorder [Unknown]
  - Cardiac disorder [Unknown]
  - Peripheral coldness [Unknown]
  - Dizziness [Unknown]
  - Dyspnoea [Unknown]
  - Fatigue [Unknown]
  - Drug hypersensitivity [Unknown]
